FAERS Safety Report 7872645-8 (Version None)
Quarter: 2011Q4

REPORT INFORMATION
  Report Type: 
  Country: None (occurrence: None)
  Receive Date: 20111030
  Receipt Date: 20110502
  Transmission Date: 20120403
  Serious: No
  Sender: FDA-Public Use
  Company Number: US-AMGEN-USASP2011022624

PATIENT
  Age: 42 Year
  Sex: Male
  Weight: 88.889 kg

DRUGS (5)
  1. PREDNISONE [Concomitant]
     Dosage: 20 MG, UNK
     Route: 048
  2. FLURBIPROFEN [Concomitant]
     Dosage: 100 MG, UNK
     Route: 048
  3. ENBREL [Suspect]
     Indication: PRODUCT USED FOR UNKNOWN INDICATION
     Dosage: 50 MG, QWK
     Route: 058
  4. OMEPRAZOLE [Concomitant]
     Dosage: 20 MG, UNK
     Route: 048
  5. PERCOCET [Concomitant]
     Route: 048

REACTIONS (1)
  - THERAPEUTIC RESPONSE DECREASED [None]
